FAERS Safety Report 24005377 (Version 2)
Quarter: 2024Q3

REPORT INFORMATION
  Report Type: Report from Study
  Country: US (occurrence: US)
  Receive Date: 20240624
  Receipt Date: 20240709
  Transmission Date: 20241017
  Serious: Yes (Death)
  Sender: ROCHE
  Company Number: US-ROCHE-10000003807

PATIENT
  Age: 81 Year
  Sex: Male

DRUGS (2)
  1. ERIVEDGE [Suspect]
     Active Substance: VISMODEGIB
     Indication: Basal cell carcinoma
     Dosage: TAKE 1 CAPSULE BY MOUTH EVERY DAY
     Route: 048
  2. ERIVEDGE [Suspect]
     Active Substance: VISMODEGIB
     Indication: Skin cancer

REACTIONS (1)
  - Death [Fatal]
